FAERS Safety Report 21741925 (Version 3)
Quarter: 2023Q1

REPORT INFORMATION
  Report Type: Spontaneous
  Country: US (occurrence: US)
  Receive Date: 20221216
  Receipt Date: 20230116
  Transmission Date: 20230417
  Serious: No
  Sender: FDA-Public Use
  Company Number: US-SANOFI-01402647

PATIENT
  Age: 67 Year
  Sex: Female

DRUGS (3)
  1. MULTAQ [Suspect]
     Active Substance: DRONEDARONE
     Dosage: 1 DF, QD
  2. MULTAQ [Suspect]
     Active Substance: DRONEDARONE
     Dosage: 1 DF, Q12H
     Route: 065
     Dates: start: 2020, end: 202212
  3. APIXABAN [Concomitant]
     Active Substance: APIXABAN
     Dosage: UNK
     Route: 065
     Dates: start: 2020

REACTIONS (7)
  - Tachycardia [Unknown]
  - Chest pain [Unknown]
  - Dizziness [Unknown]
  - Atrial flutter [Unknown]
  - Heart rate decreased [Unknown]
  - Incorrect dose administered [Unknown]
  - Off label use [Unknown]

NARRATIVE: CASE EVENT DATE: 20221201
